FAERS Safety Report 10347449 (Version 1)
Quarter: 2014Q3

REPORT INFORMATION
  Report Type: Spontaneous
  Country: AR (occurrence: AR)
  Receive Date: 20140729
  Receipt Date: 20140729
  Transmission Date: 20150326
  Serious: Yes (Other)
  Sender: FDA-Public Use
  Company Number: AR-SHIRE-AR201404222

PATIENT
  Age: 6 Year
  Sex: Male

DRUGS (4)
  1. ELAPRASE [Suspect]
     Active Substance: IDURSULFASE
     Indication: MUCOPOLYSACCHARIDOSIS II
     Dosage: UNKNOWN, 12 MG (2 VIALS ALTERNATING)
     Route: 041
     Dates: start: 201110
  2. HYDROCORTISONE. [Concomitant]
     Active Substance: HYDROCORTISONE
     Indication: PREMEDICATION
     Dosage: 10 MG/KG, UNKNOWN
     Route: 065
     Dates: start: 20140704, end: 20140704
  3. ELAPRASE [Suspect]
     Active Substance: IDURSULFASE
     Dosage: UNKNOWN, 18 MG (3 VIALS ALTERNATING)
     Route: 041
     Dates: start: 201110
  4. HYDROCORTISONE. [Concomitant]
     Active Substance: HYDROCORTISONE
     Dosage: 10 MG, UNK(PRIOR TO INFUSION OF ELAPRASE)
     Route: 065
     Dates: start: 201407

REACTIONS (3)
  - Infusion related reaction [Unknown]
  - Dermatitis allergic [Unknown]
  - Respiratory disorder [Unknown]

NARRATIVE: CASE EVENT DATE: 2014
